FAERS Safety Report 10160355 (Version 1)
Quarter: 2014Q2

REPORT INFORMATION
  Report Type: Report from Study
  Country: DE (occurrence: DE)
  Receive Date: 20140508
  Receipt Date: 20140508
  Transmission Date: 20141212
  Serious: Yes (Hospitalization)
  Sender: FDA-Public Use
  Company Number: DE-GLAXOSMITHKLINE-B0978716B

PATIENT
  Age: 29 Year
  Sex: Female
  Weight: 49 kg

DRUGS (4)
  1. TRAMETINIB [Suspect]
     Indication: METASTATIC MALIGNANT MELANOMA
     Dosage: 2MG PER DAY
     Route: 048
     Dates: start: 20140225, end: 20140406
  2. DABRAFENIB [Suspect]
     Indication: METASTATIC MALIGNANT MELANOMA
     Dosage: 150MG TWICE PER DAY
     Route: 048
     Dates: start: 20140225, end: 20140404
  3. IPILIMUMAB [Suspect]
     Dosage: 147MG PER DAY
     Route: 042
     Dates: start: 20140408
  4. ZOMETA [Suspect]
     Indication: METASTASES TO BONE
     Dosage: 4MG MONTHLY
     Route: 042
     Dates: start: 201311

REACTIONS (2)
  - Musculoskeletal pain [Not Recovered/Not Resolved]
  - Thoracic vertebral fracture [Recovering/Resolving]
